FAERS Safety Report 15746165 (Version 1)
Quarter: 2018Q4

REPORT INFORMATION
  Report Type: Report from Study
  Country: CA (occurrence: CA)
  Receive Date: 20181220
  Receipt Date: 20181220
  Transmission Date: 20190205
  Serious: Yes (Life-Threatening, Hospitalization)
  Sender: FDA-Public Use
  Company Number: CA-JNJFOC-20181218266

PATIENT
  Age: 39 Year
  Sex: Male
  Weight: 72.57 kg

DRUGS (7)
  1. STELARA [Suspect]
     Active Substance: USTEKINUMAB
     Indication: PSORIASIS
     Dosage: STRENGTH = 90 MG
     Route: 058
     Dates: start: 20170511, end: 20181213
  2. ASA [Concomitant]
     Active Substance: ASPIRIN
     Route: 065
  3. METOPROLOL. [Suspect]
     Active Substance: METOPROLOL
     Indication: PRODUCT USED FOR UNKNOWN INDICATION
     Route: 065
  4. RAMIPRIL. [Suspect]
     Active Substance: RAMIPRIL
     Indication: PRODUCT USED FOR UNKNOWN INDICATION
     Route: 065
  5. STELARA [Suspect]
     Active Substance: USTEKINUMAB
     Indication: CROHN^S DISEASE
     Dosage: STRENGTH = 90 MG
     Route: 058
     Dates: start: 20170511, end: 20181213
  6. ATORVASTATIN [Concomitant]
     Active Substance: ATORVASTATIN
     Route: 065
  7. TICAGRELOR. [Suspect]
     Active Substance: TICAGRELOR
     Indication: PRODUCT USED FOR UNKNOWN INDICATION
     Route: 065

REACTIONS (13)
  - Lymphadenopathy [Unknown]
  - Dizziness [Unknown]
  - Rash erythematous [Unknown]
  - Myocardial infarction [Recovering/Resolving]
  - Oropharyngeal pain [Unknown]
  - Pyrexia [Unknown]
  - Hypotension [Unknown]
  - Scar pain [Unknown]
  - Constipation [Unknown]
  - Headache [Unknown]
  - Visual impairment [Unknown]
  - Dyspepsia [Unknown]
  - Disorientation [Unknown]

NARRATIVE: CASE EVENT DATE: 2017
